FAERS Safety Report 10818136 (Version 2)
Quarter: 2015Q3

REPORT INFORMATION
  Report Type: Spontaneous
  Country: US (occurrence: US)
  Receive Date: 20150218
  Receipt Date: 20150825
  Transmission Date: 20151125
  Serious: No
  Sender: FDA-Public Use
  Company Number: US-GLAXOSMITHKLINE-US2015000360

PATIENT
  Age: 72 Year
  Sex: Male
  Weight: 61.22 kg

DRUGS (26)
  1. ALPRAZOLAM. [Concomitant]
     Active Substance: ALPRAZOLAM
  2. VITAMIN E [Concomitant]
     Active Substance: .ALPHA.-TOCOPHEROL
  3. DRONABINOL. [Concomitant]
     Active Substance: DRONABINOL
  4. METOLAZONE. [Concomitant]
     Active Substance: METOLAZONE
  5. VOTRIENT [Suspect]
     Active Substance: PAZOPANIB HYDROCHLORIDE
     Indication: RENAL CANCER
     Dosage: 800 MG, QD
     Route: 048
     Dates: start: 20141024, end: 20150624
  6. ONDANSETRON [Concomitant]
     Active Substance: ONDANSETRON
  7. ISOSORBIDE. [Concomitant]
     Active Substance: ISOSORBIDE
  8. AMOX TR-POTASSIUM CLAVULANATE [Concomitant]
  9. ATENOLOL. [Concomitant]
     Active Substance: ATENOLOL
  10. ELIQUIS [Concomitant]
     Active Substance: APIXABAN
  11. VOTRIENT [Suspect]
     Active Substance: PAZOPANIB HYDROCHLORIDE
     Indication: RENAL CELL CARCINOMA
     Dosage: 800 MG, QD
     Route: 048
     Dates: start: 20141027
  12. SELENIUM [Concomitant]
     Active Substance: SELENIUM
  13. FUROSEMIDE. [Concomitant]
     Active Substance: FUROSEMIDE
  14. OXYCONTIN [Concomitant]
     Active Substance: OXYCODONE HYDROCHLORIDE
  15. SAMSCA [Concomitant]
     Active Substance: TOLVAPTAN
  16. NITROFURANTOIN. [Concomitant]
     Active Substance: NITROFURANTOIN
  17. HYDROCODONE [Concomitant]
     Active Substance: HYDROCODONE
  18. GARLIC. [Concomitant]
     Active Substance: GARLIC
  19. POTASSIUM CHLORIDE. [Concomitant]
     Active Substance: POTASSIUM CHLORIDE
  20. ASPIRIN (BABY) [Concomitant]
     Active Substance: ASPIRIN
  21. ECOTRIN [Concomitant]
     Active Substance: ASPIRIN
  22. LEVOFLOXACIN. [Concomitant]
     Active Substance: LEVOFLOXACIN
  23. CLOPIDOGREL [Concomitant]
     Active Substance: CLOPIDOGREL BISULFATE
  24. PREDNISONE. [Concomitant]
     Active Substance: PREDNISONE
  25. VITAMIN C [Concomitant]
     Active Substance: ASCORBIC ACID
  26. MORPHINE [Concomitant]
     Active Substance: MORPHINE

REACTIONS (13)
  - Penile burning sensation [Not Recovered/Not Resolved]
  - Penile erythema [Not Recovered/Not Resolved]
  - Dyspnoea [Not Recovered/Not Resolved]
  - Penile pain [Not Recovered/Not Resolved]
  - Penile swelling [Not Recovered/Not Resolved]
  - Penile infection [Unknown]
  - Dry skin [Not Recovered/Not Resolved]
  - Genital rash [Not Recovered/Not Resolved]
  - Circumcision [Unknown]
  - Urinary incontinence [Not Recovered/Not Resolved]
  - Therapy cessation [Recovered/Resolved]
  - Penile blister [Not Recovered/Not Resolved]
  - Hospice care [Unknown]

NARRATIVE: CASE EVENT DATE: 20141224
